FAERS Safety Report 4998676-3 (Version None)
Quarter: 2006Q2

REPORT INFORMATION
  Report Type: 
  Country: None (occurrence: None)
  Receive Date: 20060510
  Receipt Date: 20060123
  Transmission Date: 20061013
  Serious: Yes (Other)
  Sender: FDA-Public Use
  Company Number: DE-BRISTOL-MYERS SQUIBB COMPANY-13257993

PATIENT
  Age: 40 Year
  Sex: Female

DRUGS (4)
  1. ABILIFY [Suspect]
     Indication: SCHIZOPHRENIA
  2. EDRONAX [Concomitant]
     Indication: SCHIZOPHRENIA
  3. LEVOTHYROXIN [Concomitant]
     Indication: HYPOTHYROIDISM
  4. METOPROLOL TARTRATE [Concomitant]
     Indication: HYPERTENSION

REACTIONS (2)
  - ABORTION SPONTANEOUS [None]
  - PREGNANCY [None]
